FAERS Safety Report 10613670 (Version 1)
Quarter: 2014Q4

REPORT INFORMATION
  Report Type: Report from Study
  Country: US (occurrence: US)
  Receive Date: 20141128
  Receipt Date: 20141128
  Transmission Date: 20150529
  Serious: Yes (Other)
  Sender: FDA-Public Use
  Company Number: US-ASTRAZENECA-2014SE90432

PATIENT

DRUGS (1)
  1. NEXIUM [Suspect]
     Active Substance: ESOMEPRAZOLE MAGNESIUM
     Route: 048

REACTIONS (12)
  - Renal disorder [Unknown]
  - Liver disorder [Unknown]
  - Arthritis [Unknown]
  - Gastric disorder [Unknown]
  - Gait disturbance [Unknown]
  - Injury [Unknown]
  - Peripheral swelling [Unknown]
  - Insomnia [Unknown]
  - Lung disorder [Unknown]
  - Back disorder [Unknown]
  - Gastrooesophageal reflux disease [Unknown]
  - Dyspnoea [Unknown]
